FAERS Safety Report 8050613-3 (Version None)
Quarter: 2012Q1

REPORT INFORMATION
  Report Type: 
  Country: None (occurrence: None)
  Receive Date: 20120117
  Receipt Date: 20120117
  Transmission Date: 20120608
  Serious: No
  Sender: FDA-Public Use
  Company Number: None

PATIENT

DRUGS (2)
  1. LACTATED RINGER'S [Suspect]
     Dosage: 1000 ML
  2. SECONDARY MEDICATION SET 2C7461 [Concomitant]

REACTIONS (2)
  - LIQUID PRODUCT PHYSICAL ISSUE [None]
  - DEVICE ISSUE [None]
